FAERS Safety Report 5801689-2 (Version None)
Quarter: 2008Q3

REPORT INFORMATION
  Report Type: 
  Country: None (occurrence: None)
  Receive Date: 20080707
  Receipt Date: 20080623
  Transmission Date: 20090109
  Serious: Yes (Hospitalization)
  Sender: FDA-Public Use
  Company Number: B0526588A

PATIENT
  Age: 24 Year
  Sex: Female

DRUGS (2)
  1. AUGMENTIN '125' [Suspect]
     Dosage: 2G SINGLE DOSE
     Route: 042
     Dates: start: 20080205, end: 20080205
  2. MIDAZOLAM HCL [Concomitant]
     Indication: PREMEDICATION
     Dosage: 10MG PER DAY
     Route: 042
     Dates: start: 20080205, end: 20080205

REACTIONS (4)
  - GENERALISED ERYTHEMA [None]
  - HYPERSENSITIVITY [None]
  - INFUSION SITE PRURITUS [None]
  - TACHYCARDIA [None]
